FAERS Safety Report 14284066 (Version 1)
Quarter: 2017Q4

REPORT INFORMATION
  Report Type: Spontaneous
  Country: JP (occurrence: JP)
  Receive Date: 20171214
  Receipt Date: 20171214
  Transmission Date: 20180321
  Serious: Yes (Death)
  Sender: FDA-Public Use
  Company Number: JP-JNJFOC-20171135472

PATIENT
  Age: 89 Year
  Sex: Male

DRUGS (1)
  1. DUROTEP MT [Suspect]
     Active Substance: FENTANYL
     Indication: BONE PAIN
     Route: 062

REACTIONS (2)
  - Marasmus [Fatal]
  - Malignant neoplasm progression [Fatal]
